FAERS Safety Report 7675862-5 (Version None)
Quarter: 2011Q3

REPORT INFORMATION
  Report Type: 
  Country: None (occurrence: None)
  Receive Date: 20110811
  Receipt Date: 20110804
  Transmission Date: 20111222
  Serious: Yes (Other)
  Sender: FDA-Public Use
  Company Number: US-BIOGENIDEC-2010BI013388

PATIENT
  Sex: Female

DRUGS (4)
  1. TOPAMAX [Concomitant]
     Indication: CONVULSION PROPHYLAXIS
  2. PERCOCET [Concomitant]
     Indication: MIGRAINE
  3. TYSABRI [Suspect]
     Indication: MULTIPLE SCLEROSIS
     Route: 042
     Dates: start: 20091211
  4. SOMA [Concomitant]
     Indication: MUSCLE SPASMS

REACTIONS (9)
  - COLOUR BLINDNESS [None]
  - EAR INFECTION [None]
  - LOSS OF CONSCIOUSNESS [None]
  - BLADDER DISORDER [None]
  - MIGRAINE [None]
  - PETIT MAL EPILEPSY [None]
  - FATIGUE [None]
  - NEURALGIA [None]
  - CONVULSION [None]
